FAERS Safety Report 6407326-0 (Version None)
Quarter: 2009Q4

REPORT INFORMATION
  Report Type: 
  Country: None (occurrence: None)
  Receive Date: 20091020
  Receipt Date: 20091014
  Transmission Date: 20100525
  Serious: Yes (Hospitalization)
  Sender: FDA-Public Use
  Company Number: B0596195A

PATIENT
  Sex: Female

DRUGS (8)
  1. RELENZA [Suspect]
     Indication: INFLUENZA
     Dosage: 10MG TWICE PER DAY
     Route: 055
     Dates: start: 20090930
  2. ALLELOCK [Suspect]
     Indication: DRUG USE FOR UNKNOWN INDICATION
     Route: 048
  3. ADONA (AC-17) [Suspect]
     Indication: DRUG USE FOR UNKNOWN INDICATION
     Route: 065
  4. MUCODYNE [Concomitant]
     Route: 048
  5. MUCOSOLVAN [Concomitant]
     Route: 048
  6. CALONAL [Concomitant]
     Route: 065
  7. CALONAL [Concomitant]
     Route: 065
     Dates: start: 20090930
  8. CHINESE MEDICINE [Concomitant]
     Route: 048

REACTIONS (3)
  - ENCEPHALOPATHY [None]
  - HEADACHE [None]
  - VOMITING [None]
